FAERS Safety Report 9817156 (Version 3)
Quarter: 2017Q3

REPORT INFORMATION
  Report Type: Spontaneous
  Country: US (occurrence: US)
  Receive Date: 20140114
  Receipt Date: 20170711
  Transmission Date: 20171128
  Serious: Yes (Death, Other)
  Sender: FDA-Public Use
  Company Number: US-PFIZER INC-2014007897

PATIENT
  Age: 47 Year
  Sex: Female

DRUGS (7)
  1. DEXTROMETHORPHAN HYDROBROMIDE. [Suspect]
     Active Substance: DEXTROMETHORPHAN HYDROBROMIDE
     Dosage: UNK
  2. QUETIAPINE. [Suspect]
     Active Substance: QUETIAPINE
     Dosage: NOT REPORTED
     Route: 065
  3. ALPRAZOLAM. [Suspect]
     Active Substance: ALPRAZOLAM
     Dosage: NOT REPORTED
     Route: 065
  4. DILTIAZEM HCL [Suspect]
     Active Substance: DILTIAZEM HYDROCHLORIDE
     Dosage: NOT REPORTED
     Route: 065
  5. HEROIN [Suspect]
     Active Substance: DIAMORPHINE
     Dosage: NOT REPORTED
     Route: 065
  6. QUININE [Suspect]
     Active Substance: QUININE
     Dosage: NOT REPORTED
     Route: 065
  7. CODEINE [Suspect]
     Active Substance: CODEINE
     Dosage: NOT REPORTED
     Route: 065

REACTIONS (2)
  - Drug abuse [Fatal]
  - Toxicity to various agents [Fatal]

NARRATIVE: CASE EVENT DATE: 2012
